FAERS Safety Report 12796829 (Version 2)
Quarter: 2017Q2

REPORT INFORMATION
  Report Type: Report from Study
  Country: None (occurrence: US)
  Receive Date: 20160930
  Receipt Date: 20170421
  Transmission Date: 20170830
  Serious: Yes (Other)
  Sender: FDA-Public Use
  Company Number: US-BIOVITRUM-2016US0710

PATIENT
  Age: 50 Year
  Sex: Male
  Weight: 121 kg

DRUGS (7)
  1. IBUPROFEN. [Concomitant]
     Active Substance: IBUPROFEN
  2. METHOTREXATE. [Concomitant]
     Active Substance: METHOTREXATE
  3. KINERET [Suspect]
     Active Substance: ANAKINRA
     Indication: HISTIOCYTOSIS
     Route: 058
     Dates: start: 20160622, end: 20160801
  4. GABAPENTIN. [Concomitant]
     Active Substance: GABAPENTIN
  5. KINERET [Suspect]
     Active Substance: ANAKINRA
     Route: 058
     Dates: start: 20160921
  6. AMLODIPINE [Concomitant]
     Active Substance: AMLODIPINE BESYLATE
  7. METHOCARBAMOL. [Concomitant]
     Active Substance: METHOCARBAMOL

REACTIONS (5)
  - Depression [Recovered/Resolved]
  - Suicidal ideation [Not Recovered/Not Resolved]
  - Abdominal pain [Not Recovered/Not Resolved]
  - Palpitations [Not Recovered/Not Resolved]
  - Back pain [Not Recovered/Not Resolved]

NARRATIVE: CASE EVENT DATE: 2016
